FAERS Safety Report 8309317-1 (Version None)
Quarter: 2012Q2

REPORT INFORMATION
  Report Type: 
  Country: None (occurrence: None)
  Receive Date: 20120425
  Receipt Date: 20120417
  Transmission Date: 20120825
  Serious: Yes (Death)
  Sender: FDA-Public Use
  Company Number: FR-ASTRAZENECA-2012SE24104

PATIENT
  Sex: Male

DRUGS (3)
  1. QUETIAPINE FUMARATE [Suspect]
     Route: 048
     Dates: start: 20120201
  2. DEPAKOTE [Concomitant]
  3. ZYPREXA [Concomitant]
     Route: 048
     Dates: end: 20120201

REACTIONS (1)
  - COMPLETED SUICIDE [None]
